FAERS Safety Report 21217067 (Version 1)
Quarter: 2022Q3

REPORT INFORMATION
  Report Type: Spontaneous
  Country: US (occurrence: None)
  Receive Date: 20220816
  Receipt Date: 20220816
  Transmission Date: 20221026
  Serious: No
  Sender: FDA-Public Use
  Company Number: US-ROCHE-3044782

PATIENT
  Sex: Male
  Weight: 62.198 kg

DRUGS (1)
  1. ALECENSA [Suspect]
     Active Substance: ALECTINIB HYDROCHLORIDE
     Indication: Bronchial carcinoma
     Dosage: 4 TABLETS TWICE A DAY
     Route: 048
     Dates: start: 20220201

REACTIONS (2)
  - Product dose omission issue [Unknown]
  - No adverse event [Unknown]
